FAERS Safety Report 20946473 (Version 1)
Quarter: 2022Q2

REPORT INFORMATION
  Report Type: Spontaneous
  Country: TH (occurrence: TH)
  Receive Date: 20220610
  Receipt Date: 20220610
  Transmission Date: 20220721
  Serious: Yes (Other)
  Sender: FDA-Public Use
  Company Number: TH-BAYER-2022P003965

PATIENT
  Age: 61 Year
  Sex: Male

DRUGS (1)
  1. REGORAFENIB [Suspect]
     Active Substance: REGORAFENIB
     Dosage: 3 WEEK ON,1 WEEK OFF
     Route: 048
     Dates: start: 20190816

REACTIONS (6)
  - Lower gastrointestinal haemorrhage [None]
  - Hepatic mass [None]
  - Hepatic lesion [None]
  - Pulmonary mass [None]
  - Palmar-plantar erythrodysaesthesia syndrome [None]
  - Off label use [None]

NARRATIVE: CASE EVENT DATE: 20190816
